FAERS Safety Report 9482481 (Version 2)
Quarter: 2013Q4

REPORT INFORMATION
  Report Type: Spontaneous
  Country: US (occurrence: US)
  Receive Date: 20130828
  Receipt Date: 20131018
  Transmission Date: 20140711
  Serious: Yes (Other)
  Sender: FDA-Public Use
  Company Number: GXBR2013US001602

PATIENT
  Age: 62 Year
  Sex: Female
  Weight: 56.69 kg

DRUGS (8)
  1. METHYLPREDNISOLONE TABLETS USP [Suspect]
     Indication: INFLAMMATION
     Dosage: 4 MG, UNK
     Route: 048
     Dates: start: 20130314, end: 20130316
  2. HYDROCODONE BITARTRATE AND ACETAMINOPHEN [Concomitant]
     Indication: BACK PAIN
     Dosage: HYDROCODONE 7.5MG AND 500MG ACETAMINOPHEN, BID
     Route: 048
  3. ATORVASTATIN [Concomitant]
     Indication: BLOOD CHOLESTEROL INCREASED
     Dosage: 20 MG, QD
     Route: 048
  4. BABY ASPIRIN [Concomitant]
     Indication: PROMOTION OF PERIPHERAL CIRCULATION
     Dosage: 81 MG, UNK
     Route: 048
  5. CITALOPRAM [Concomitant]
     Indication: DEPRESSION
     Dosage: 20 MG, QD
     Route: 048
  6. CALCIUM + VIT D [Concomitant]
     Indication: OSTEOPENIA
     Dosage: UNK DF, UNK
     Route: 048
  7. ALPRAZOLAM [Concomitant]
     Indication: ANXIETY
     Dosage: 0.5 MG, TID PRN
     Route: 048
  8. TEMAZEPAM [Concomitant]
     Indication: INSOMNIA
     Dosage: 30 MG, QHS
     Route: 048

REACTIONS (10)
  - Suicidal ideation [Recovered/Resolved]
  - Trichotillomania [Recovered/Resolved]
  - Feeling abnormal [Unknown]
  - Nervousness [Not Recovered/Not Resolved]
  - Dyspnoea [Unknown]
  - Decreased appetite [Unknown]
  - Tremor [Not Recovered/Not Resolved]
  - Dizziness [Unknown]
  - Nausea [Not Recovered/Not Resolved]
  - Pain in extremity [Not Recovered/Not Resolved]
